FAERS Safety Report 7007048-1 (Version None)
Quarter: 2010Q3

REPORT INFORMATION
  Report Type: 
  Country: None (occurrence: None)
  Receive Date: 20100922
  Receipt Date: 20100913
  Transmission Date: 20110219
  Serious: Yes (Hospitalization)
  Sender: FDA-Public Use
  Company Number: PHHY2010BE61391

PATIENT
  Age: 61 Year
  Sex: Male

DRUGS (2)
  1. METOPROLOL [Suspect]
     Indication: HYPERTENSION
  2. GADODIAMIDE [Suspect]

REACTIONS (19)
  - ABDOMINAL PAIN [None]
  - ARTERIOSCLEROSIS [None]
  - COLITIS COLLAGENOUS [None]
  - DYSLIPIDAEMIA [None]
  - DYSPEPSIA [None]
  - HYPERTENSION [None]
  - METABOLIC ACIDOSIS [None]
  - MOBILITY DECREASED [None]
  - MYOCARDIAL ISCHAEMIA [None]
  - NEPHROGENIC SYSTEMIC FIBROSIS [None]
  - OEDEMA PERIPHERAL [None]
  - PAIN [None]
  - PHYSICAL DISABILITY [None]
  - PRURITUS [None]
  - SKIN DISORDER [None]
  - SKIN FIBROSIS [None]
  - SKIN HYPERTROPHY [None]
  - SKIN TIGHTNESS [None]
  - TRANSPLANT REJECTION [None]
